FAERS Safety Report 25186225 (Version 1)
Quarter: 2025Q2

REPORT INFORMATION
  Report Type: Report from Study
  Country: US (occurrence: US)
  Receive Date: 20250410
  Receipt Date: 20250410
  Transmission Date: 20250717
  Serious: No
  Sender: SANDOZ
  Company Number: US-SANDOZ-SDZ2024US101484

PATIENT
  Sex: Male

DRUGS (4)
  1. OMNITROPE [Suspect]
     Active Substance: SOMATROPIN
     Indication: Short stature
     Dosage: 2.1 MG, QD (10/1.5 MG/ML)
     Route: 058
  2. OMNITROPE [Suspect]
     Active Substance: SOMATROPIN
     Indication: Short stature
     Dosage: 2.1 MG, QD (10/1.5 MG/ML)
     Route: 058
  3. OMNITROPE [Suspect]
     Active Substance: SOMATROPIN
     Route: 065
  4. OMNITROPE [Suspect]
     Active Substance: SOMATROPIN
     Route: 065

REACTIONS (2)
  - Device use issue [Unknown]
  - Device malfunction [Unknown]
